FAERS Safety Report 9149833 (Version 1)
Quarter: 2013Q1

REPORT INFORMATION
  Report Type: Spontaneous
  Country: US (occurrence: None)
  Receive Date: 20130228
  Receipt Date: 20130228
  Transmission Date: 20140127
  Serious: Yes (Other)
  Sender: FDA-Public Use
  Company Number: None

PATIENT
  Age: 73 Year
  Sex: Female
  Weight: 47.63 kg

DRUGS (1)
  1. MUPIROCIN [Suspect]
     Indication: PREOPERATIVE CARE
     Dosage: QTIP 2X DAY X 5 DAYS NARES
     Dates: start: 20121220, end: 20121225

REACTIONS (2)
  - Drug dispensing error [None]
  - Fungal infection [None]
